FAERS Safety Report 5123293-4 (Version None)
Quarter: 2006Q4

REPORT INFORMATION
  Report Type: 
  Country: None (occurrence: None)
  Receive Date: 20061009
  Receipt Date: 20060929
  Transmission Date: 20070319
  Serious: Yes (Other)
  Sender: FDA-Public Use
  Company Number: NL-GLAXOSMITHKLINE-B0440934A

PATIENT
  Age: 47 Year
  Sex: Male

DRUGS (5)
  1. BUPROPION HCL [Suspect]
     Indication: DRUG USE FOR UNKNOWN INDICATION
  2. SELEKTINE [Concomitant]
  3. ACENOCOUMAROL [Concomitant]
  4. ZESTRIL [Concomitant]
  5. OXAZEPAM [Concomitant]

REACTIONS (4)
  - DEPRESSION [None]
  - PALPITATIONS [None]
  - PARAESTHESIA [None]
  - SUICIDAL IDEATION [None]
